FAERS Safety Report 6106827-2 (Version None)
Quarter: 2009Q1

REPORT INFORMATION
  Report Type: 
  Country: None (occurrence: None)
  Receive Date: 20090304
  Receipt Date: 20090220
  Transmission Date: 20090719
  Serious: Yes (Hospitalization)
  Sender: FDA-Public Use
  Company Number: 2006-00136

PATIENT
  Age: 55 Year
  Sex: Male
  Weight: 53 kg

DRUGS (3)
  1. VELCADE [Suspect]
     Indication: B-CELL LYMPHOMA
     Dosage: 2.60 MG, 2.40 MG,  INTRAVENOUS
     Route: 042
     Dates: end: 20060119
  2. VELCADE [Suspect]
     Indication: B-CELL LYMPHOMA
     Dosage: 2.60 MG, 2.40 MG,  INTRAVENOUS
     Route: 042
     Dates: start: 20051107
  3. HEPTAMINOL (HEPTAMINOL) [Concomitant]

REACTIONS (6)
  - ASTHENIA [None]
  - DIARRHOEA [None]
  - GENERAL PHYSICAL HEALTH DETERIORATION [None]
  - MALNUTRITION [None]
  - PERFORMANCE STATUS DECREASED [None]
  - WEIGHT DECREASED [None]
